FAERS Safety Report 20132811 (Version 1)
Quarter: 2021Q4

REPORT INFORMATION
  Report Type: Spontaneous
  Country: US (occurrence: US)
  Receive Date: 20211130
  Receipt Date: 20211130
  Transmission Date: 20220303
  Serious: Yes (Hospitalization, Other)
  Sender: FDA-Public Use
  Company Number: US-NOVARTISPH-NVSC2021US266211

PATIENT
  Sex: Male

DRUGS (7)
  1. PREDNISONE [Suspect]
     Active Substance: PREDNISONE
     Indication: Prostate cancer metastatic
     Dosage: UNK (TAPERED OFF)
     Route: 065
     Dates: start: 201808
  2. PREDNISONE [Suspect]
     Active Substance: PREDNISONE
     Dosage: 5 MG, BID (6 CYCLES )
     Route: 065
     Dates: end: 20190815
  3. DOCETAXEL [Suspect]
     Active Substance: DOCETAXEL
     Indication: Prostate cancer metastatic
     Dosage: 60 MG/M2, Q 21 DAYS
     Route: 042
  4. DEXAMETHASONE [Suspect]
     Active Substance: DEXAMETHASONE
     Indication: Prostate cancer metastatic
     Dosage: UNK(LOW DOSE)
     Route: 065
     Dates: start: 202104
  5. ABIRATERONE [Suspect]
     Active Substance: ABIRATERONE
     Indication: Prostate cancer metastatic
     Dosage: UNK
     Route: 065
     Dates: start: 201808, end: 201812
  6. CYCLOPHOSPHAMIDE [Suspect]
     Active Substance: CYCLOPHOSPHAMIDE
     Indication: Prostate cancer metastatic
     Dosage: UNK
     Route: 048
     Dates: start: 202104
  7. PEMBROLIZUMAB [Suspect]
     Active Substance: PEMBROLIZUMAB
     Indication: Prostate cancer metastatic
     Dosage: UNK (4 DOSES)
     Route: 065

REACTIONS (7)
  - Back pain [Unknown]
  - Prostatic specific antigen increased [Unknown]
  - Haemorrhagic stroke [Unknown]
  - Cerebrovascular accident [Unknown]
  - Metastases to bone [Unknown]
  - Asthenia [Unknown]
  - Gait disturbance [Unknown]
